FAERS Safety Report 16098995 (Version 1)
Quarter: 2019Q1

REPORT INFORMATION
  Report Type: Spontaneous
  Country: US (occurrence: US)
  Receive Date: 20190321
  Receipt Date: 20190321
  Transmission Date: 20190418
  Serious: No
  Sender: FDA-Public Use
  Company Number: US-PFIZER INC-2019117751

PATIENT
  Age: 32 Year
  Sex: Female

DRUGS (1)
  1. LYRICA [Suspect]
     Active Substance: PREGABALIN
     Indication: FIBROMYALGIA
     Dosage: 225 MG, DAILY (ONE 75 MG IN THE MORNING AND TWO 75 MG IN THE AFTERNOON)
     Dates: start: 2016

REACTIONS (3)
  - Muscle atrophy [Unknown]
  - Fat tissue decreased [Unknown]
  - Malaise [Unknown]

NARRATIVE: CASE EVENT DATE: 2016
